FAERS Safety Report 19803043 (Version 1)
Quarter: 2021Q3

REPORT INFORMATION
  Report Type: Spontaneous
  Country: US (occurrence: US)
  Receive Date: 20210908
  Receipt Date: 20210908
  Transmission Date: 20211014
  Serious: Yes (Life-Threatening)
  Sender: FDA-Public Use
  Company Number: None

PATIENT
  Age: 43 Year
  Sex: Female
  Weight: 85.5 kg

DRUGS (7)
  1. HUMIRA [Suspect]
     Active Substance: ADALIMUMAB
     Indication: SARCOIDOSIS
     Dosage: ?          QUANTITY:1 INJECTION(S);OTHER FREQUENCY:Q 2 WEEKS;?
     Route: 058
     Dates: start: 20210903, end: 20210903
  2. PRAZOSIN (PRAZOSIN HCL 2MG CAP) [Concomitant]
     Active Substance: PRAZOSIN
  3. PANTOPRAZOLE [Concomitant]
     Active Substance: PANTOPRAZOLE
  4. CYCLOBENAZAPRINE [Concomitant]
  5. OLEPTRO [Concomitant]
     Active Substance: TRAZODONE HYDROCHLORIDE
  6. PROPRANOLOL [Concomitant]
     Active Substance: PROPRANOLOL HYDROCHLORIDE
  7. ARIPIPRAZOLE. [Concomitant]
     Active Substance: ARIPIPRAZOLE

REACTIONS (3)
  - Vision blurred [None]
  - Blood pressure increased [None]
  - Headache [None]

NARRATIVE: CASE EVENT DATE: 20210903
